FAERS Safety Report 8143653-7 (Version None)
Quarter: 2012Q1

REPORT INFORMATION
  Report Type: 
  Country: None (occurrence: None)
  Receive Date: 20120217
  Receipt Date: 20120216
  Transmission Date: 20120608
  Serious: Yes (Other)
  Sender: FDA-Public Use
  Company Number: US-BAYER-2012-015823

PATIENT
  Age: 17 Year
  Sex: Female

DRUGS (2)
  1. YASMIN [Suspect]
     Dosage: UNK
     Dates: start: 20010101, end: 20020101
  2. YAZ [Suspect]
     Dosage: UNK
     Dates: start: 20010101, end: 20020101

REACTIONS (4)
  - PAIN [None]
  - GALLBLADDER DISORDER [None]
  - INJURY [None]
  - EMOTIONAL DISTRESS [None]
